FAERS Safety Report 9767768 (Version 1)
Quarter: 2013Q4

REPORT INFORMATION
  Report Type: Report from Study
  Country: US (occurrence: US)
  Receive Date: 20131217
  Receipt Date: 20131217
  Transmission Date: 20140711
  Serious: Yes (Other)
  Sender: FDA-Public Use
  Company Number: US-PURDUE-USA-2013-0109500

PATIENT
  Sex: Female

DRUGS (2)
  1. OXY CR TAB [Suspect]
     Indication: CONNECTIVE TISSUE DISORDER
     Dosage: UNK
     Route: 048
     Dates: start: 20031213
  2. OXY CR TAB [Suspect]
     Dosage: 160 MG, TWICE
     Route: 048
     Dates: start: 2011

REACTIONS (2)
  - Transient ischaemic attack [Not Recovered/Not Resolved]
  - Stress [Unknown]
